APPROVED DRUG PRODUCT: LEVOLEUCOVORIN CALCIUM
Active Ingredient: LEVOLEUCOVORIN CALCIUM
Strength: EQ 50MG BASE/VIAL
Dosage Form/Route: POWDER;INTRAVENOUS
Application: A206516 | Product #001
Applicant: ACTAVIS LLC
Approved: Feb 13, 2017 | RLD: No | RS: No | Type: DISCN